FAERS Safety Report 8998914 (Version 2)
Quarter: 2013Q1

REPORT INFORMATION
  Report Type: Report from Study
  Country: US (occurrence: US)
  Receive Date: 20130103
  Receipt Date: 20130114
  Transmission Date: 20140127
  Serious: Yes (Hospitalization)
  Sender: FDA-Public Use
  Company Number: US-MERCK-1301USA000208

PATIENT
  Age: 61 Year
  Sex: Male
  Weight: 82.31 kg

DRUGS (6)
  1. PEGINTERFERON ALFA-2B [Suspect]
     Indication: HEPATITIS C
     Dosage: 150 MICROGRAM, QW
     Route: 058
     Dates: start: 20121113
  2. RIBAVIRIN [Suspect]
     Indication: HEPATITIS C
     Dosage: 600 MG, BID
     Route: 048
     Dates: start: 20121113
  3. BOCEPREVIR [Suspect]
     Indication: HEPATITIS C
     Dosage: 800 MG, Q8H
     Route: 048
     Dates: start: 20121211, end: 20121211
  4. ISENTRESS [Concomitant]
     Indication: HIV INFECTION
     Dosage: UNK
     Dates: start: 20091007
  5. TRUVADA [Concomitant]
     Indication: HIV INFECTION
     Dosage: UNK
     Dates: start: 20091007
  6. RISPERIDONE [Suspect]
     Indication: BIPOLAR DISORDER
     Dosage: UNK
     Route: 048
     Dates: start: 2007

REACTIONS (1)
  - Extrapyramidal disorder [Recovered/Resolved]
